FAERS Safety Report 16414612 (Version 1)
Quarter: 2019Q2

REPORT INFORMATION
  Report Type: Spontaneous
  Country: US (occurrence: US)
  Receive Date: 20190611
  Receipt Date: 20190611
  Transmission Date: 20190711
  Serious: Yes (Other)
  Sender: FDA-Public Use
  Company Number: US-PFIZER INC-2019241296

PATIENT
  Age: 60 Year
  Sex: Male
  Weight: 86.18 kg

DRUGS (4)
  1. ADVIL PM [Suspect]
     Active Substance: DIPHENHYDRAMINE CITRATE\IBUPROFEN
     Indication: BACK PAIN
     Dosage: 400 MG, 1X/DAY (200MG OF IBUPROFEN, 2 BY MOUTH AT NIGHT FOR THE PAIN WITH A GLASS OF WATER)
     Route: 048
     Dates: start: 201906
  2. TYLENOL [Concomitant]
     Active Substance: ACETAMINOPHEN
  3. VITAMIN B [Concomitant]
     Active Substance: VITAMIN B
     Dosage: UNK UNK, 1X/DAY
  4. VITAMIN D [VITAMIN D NOS] [Concomitant]
     Active Substance: VITAMIN D NOS
     Dosage: UNK UNK, 1X/DAY

REACTIONS (4)
  - Product use complaint [Not Recovered/Not Resolved]
  - Product size issue [Not Recovered/Not Resolved]
  - Choking [Not Recovered/Not Resolved]
  - Oropharyngeal pain [Unknown]

NARRATIVE: CASE EVENT DATE: 201906
